FAERS Safety Report 18202236 (Version 3)
Quarter: 2021Q4

REPORT INFORMATION
  Report Type: Spontaneous
  Country: US (occurrence: US)
  Receive Date: 20200827
  Receipt Date: 20211019
  Transmission Date: 20220303
  Serious: No
  Sender: FDA-Public Use
  Company Number: US-HORIZON-PRO-0199-2020

PATIENT
  Sex: Female

DRUGS (8)
  1. PROCYSBI [Suspect]
     Active Substance: CYSTEAMINE BITARTRATE
     Indication: Cystinosis
     Dosage: 900MG TWICE A DAY; CURRENT DOSE: 825MG BID 2 SEPARATED DOSES
     Route: 048
     Dates: start: 201606
  2. PREDNISONE [Concomitant]
     Active Substance: PREDNISONE
     Dosage: 5MG BID 2 SEPARATED DOSES
  3. CELLCEPT [Concomitant]
     Active Substance: MYCOPHENOLATE MOFETIL\MYCOPHENOLATE MOFETIL HYDROCHLORIDE
     Dosage: 2 PILLS BID 2 SEPARATED DOSES
  4. PROGRAF [Concomitant]
     Active Substance: TACROLIMUS
     Dosage: 3MG BID 2 SEPARATED DOSES
  5. LANTUS [Concomitant]
     Active Substance: INSULIN GLARGINE
     Dosage: 15UNITS QD
  6. TRADJENTA [Concomitant]
     Active Substance: LINAGLIPTIN
     Dosage: 1 PILL QD
  7. GLIPIZIDE [Concomitant]
     Active Substance: GLIPIZIDE
  8. LEVOTHYROXINE [Concomitant]
     Active Substance: LEVOTHYROXINE
     Dosage: QAM

REACTIONS (2)
  - Vomiting [Recovered/Resolved]
  - Nausea [Recovered/Resolved]
